FAERS Safety Report 21830316 (Version 1)
Quarter: 2023Q1

REPORT INFORMATION
  Report Type: Spontaneous
  Country: US (occurrence: None)
  Receive Date: 20230105
  Receipt Date: 20230105
  Transmission Date: 20230418
  Serious: No
  Sender: FDA-Public Use
  Company Number: None

PATIENT
  Sex: Female

DRUGS (2)
  1. TREPROSTINIL [Suspect]
     Active Substance: TREPROSTINIL
     Indication: Pulmonary arterial hypertension
     Route: 042
     Dates: start: 20210317
  2. CASSETTE MEDI RESERVOIR [Concomitant]
     Dates: start: 20210317

REACTIONS (4)
  - Chest pain [None]
  - Dizziness [None]
  - Device defective [None]
  - Recalled product administered [None]
